FAERS Safety Report 4431701-7 (Version None)
Quarter: 2004Q3

REPORT INFORMATION
  Report Type: 
  Country: None (occurrence: None)
  Receive Date: 20040825
  Receipt Date: 20040726
  Transmission Date: 20050211
  Serious: Yes (Death, Hospitalization)
  Sender: FDA-Public Use
  Company Number: 200417352GDDC

PATIENT
  Age: 56 Year
  Sex: Female
  Weight: 42.4 kg

DRUGS (5)
  1. TAXOTERE [Suspect]
     Indication: NASOPHARYNGEAL CANCER
     Route: 042
     Dates: start: 20040719, end: 20040816
  2. CISPLATIN [Suspect]
     Indication: NASOPHARYNGEAL CANCER
     Route: 042
     Dates: start: 20040719, end: 20040719
  3. SPECTRAPAIN [Concomitant]
     Indication: PAIN
     Route: 048
     Dates: start: 20040301, end: 20040816
  4. ANDOLEX [Concomitant]
     Indication: DYSPHAGIA
     Route: 048
     Dates: start: 20040301, end: 20040816
  5. VITAMIN B COMPLEX CAP [Concomitant]
     Route: 048
     Dates: start: 20040601, end: 20040816

REACTIONS (6)
  - DEHYDRATION [None]
  - DISEASE PROGRESSION [None]
  - FEBRILE NEUTROPENIA [None]
  - INFECTION [None]
  - NEOPLASM PROGRESSION [None]
  - RENAL FAILURE ACUTE [None]
